FAERS Safety Report 9111572 (Version 1)
Quarter: 2013Q1

REPORT INFORMATION
  Report Type: Spontaneous
  Country: US (occurrence: US)
  Receive Date: 20130219
  Receipt Date: 20130219
  Transmission Date: 20140127
  Serious: No
  Sender: FDA-Public Use
  Company Number: US-BRISTOL-MYERS SQUIBB COMPANY-16347171

PATIENT
  Age: 66 Year
  Sex: Female

DRUGS (3)
  1. ORENCIA [Suspect]
     Indication: RHEUMATOID ARTHRITIS
     Dosage: LAST INFUSION: 10JAN2012,07FEB12.?NO OF INF:4
     Route: 042
     Dates: start: 20111108
  2. NAPROXEN [Concomitant]
     Dosage: PRN
  3. LORTAB [Concomitant]
     Dosage: 1DF: 5/500, PRN

REACTIONS (7)
  - Fatigue [Recovering/Resolving]
  - Alopecia [Unknown]
  - Presyncope [Unknown]
  - Musculoskeletal pain [Unknown]
  - Sinusitis [Recovering/Resolving]
  - Cough [Unknown]
  - Furuncle [Recovering/Resolving]
